FAERS Safety Report 10685272 (Version 1)
Quarter: 2014Q4

REPORT INFORMATION
  Report Type: Spontaneous
  Country: US (occurrence: None)
  Receive Date: 20141217
  Receipt Date: 20141217
  Transmission Date: 20150529
  Serious: Yes (Hospitalization)
  Sender: FDA-Public Use
  Company Number: US-014902

PATIENT
  Age: 46 Year
  Sex: Female
  Weight: 80.74 kg

DRUGS (5)
  1. CALCIUM [Concomitant]
     Active Substance: CALCIUM
  2. MOTRIN [Concomitant]
     Active Substance: IBUPROFEN
  3. LYSTEDA [Suspect]
     Active Substance: TRANEXAMIC ACID
     Indication: MENORRHAGIA
     Route: 048
     Dates: start: 20140226, end: 20140301
  4. DAILY VITAMINS [Concomitant]
  5. XANAX [Concomitant]
     Active Substance: ALPRAZOLAM

REACTIONS (2)
  - Deep vein thrombosis [None]
  - Pain [None]

NARRATIVE: CASE EVENT DATE: 20140301
